FAERS Safety Report 4424084-X (Version None)
Quarter: 2004Q3

REPORT INFORMATION
  Report Type: 
  Country: None (occurrence: None)
  Receive Date: 20040809
  Receipt Date: 20040726
  Transmission Date: 20050211
  Serious: Yes (Hospitalization)
  Sender: FDA-Public Use
  Company Number: 041-0981-M0000028

PATIENT
  Age: 72 Year
  Sex: Male
  Weight: 88 kg

DRUGS (13)
  1. ATORVASTATIN (ATORVASTATIN) [Suspect]
     Indication: CORONARY ARTERY DISEASE
     Dosage: 10 MG (1 IN 1 D), ORAL
     Route: 048
     Dates: start: 19981223, end: 19990215
  2. ALL OTHER THERAPEUTIC PRODUCTS (ALL OTHER THERAPEUTIC PRODUCTS) [Concomitant]
  3. NADROPARIN CALCIUM (NADROPARIN CALCIUM) [Concomitant]
  4. FELODIPINE [Concomitant]
  5. ASPIRIN [Concomitant]
  6. INSULIN [Concomitant]
  7. METFORMIN HCL [Concomitant]
  8. CIPROFLOXACIN [Concomitant]
  9. PANTOPRAZOLE (PANTOPRAZOLE) [Concomitant]
  10. QUINAPRIL HYDROCHLORIDE (QUANAPRIL HYDROCHLORIDE) [Concomitant]
  11. GLYCERIL TRINITRATE (GLYCERYL TRINITRATE) [Concomitant]
  12. ATENOLOL [Concomitant]
  13. MAGNESIUM ASPARTATEE (MAGNESIUM ASPARTATE) [Concomitant]

REACTIONS (10)
  - ANASTOMOTIC HAEMORRHAGE [None]
  - ANASTOMOTIC LEAK [None]
  - AORTIC ANEURYSM [None]
  - BLOOD CREATININE INCREASED [None]
  - DIALYSIS [None]
  - MYOCARDIAL INFARCTION [None]
  - PNEUMONIA [None]
  - POST PROCEDURAL COMPLICATION [None]
  - POST PROCEDURAL HAEMORRHAGE [None]
  - THROMBECTOMY [None]
